FAERS Safety Report 16614553 (Version 3)
Quarter: 2019Q4

REPORT INFORMATION
  Report Type: Spontaneous
  Country: US (occurrence: US)
  Receive Date: 20190723
  Receipt Date: 20191003
  Transmission Date: 20200122
  Serious: No
  Sender: FDA-Public Use
  Company Number: US-PFIZER INC-2019310669

PATIENT
  Sex: Male
  Weight: 127 kg

DRUGS (1)
  1. ATORVASTATIN CALCIUM. [Suspect]
     Active Substance: ATORVASTATIN CALCIUM
     Indication: BLOOD CHOLESTEROL DECREASED
     Dosage: 40 MG, 1X/DAY

REACTIONS (2)
  - Musculoskeletal stiffness [Unknown]
  - Glucose tolerance impaired [Unknown]
